FAERS Safety Report 17387124 (Version 1)
Quarter: 2020Q1

REPORT INFORMATION
  Report Type: Spontaneous
  Country: PL (occurrence: PL)
  Receive Date: 20200206
  Receipt Date: 20200206
  Transmission Date: 20200409
  Serious: Yes (Other)
  Sender: FDA-Public Use
  Company Number: PL-PRINSTON PHARMACEUTICAL INC.-2020PRN00037

PATIENT
  Age: 64 Year
  Sex: Male

DRUGS (5)
  1. BUPROPION. [Suspect]
     Active Substance: BUPROPION
     Route: 065
  2. BISOPROLOL [Concomitant]
     Active Substance: BISOPROLOL
     Route: 065
  3. ENALAPRIL [Concomitant]
     Active Substance: ENALAPRIL
     Route: 065
  4. PROPAFENONE. [Suspect]
     Active Substance: PROPAFENONE
     Route: 065
  5. ASA [Concomitant]
     Active Substance: ASPIRIN
     Route: 065

REACTIONS (5)
  - Bradycardia [Unknown]
  - Electrocardiogram PQ interval prolonged [Unknown]
  - Electrocardiogram QRS complex prolonged [Unknown]
  - Dry mouth [Unknown]
  - Drug interaction [Unknown]
